FAERS Safety Report 6356104-X (Version None)
Quarter: 2009Q3

REPORT INFORMATION
  Report Type: 
  Country: None (occurrence: None)
  Receive Date: 20090915
  Receipt Date: 20090728
  Transmission Date: 20100115
  Serious: No
  Sender: FDA-Public Use
  Company Number: US-BAYER-200919568NA

PATIENT
  Age: 38 Year
  Sex: Female
  Weight: 64 kg

DRUGS (2)
  1. YAZ [Suspect]
     Indication: HORMONE LEVEL ABNORMAL
     Route: 048
     Dates: start: 20081201, end: 20090301
  2. ARMOR THYROID [Concomitant]

REACTIONS (3)
  - HYPOAESTHESIA [None]
  - NO ADVERSE EVENT [None]
  - PAIN IN EXTREMITY [None]
